FAERS Safety Report 4771130-X (Version None)
Quarter: 2005Q3

REPORT INFORMATION
  Report Type: 
  Country: None (occurrence: None)
  Receive Date: 20050912
  Receipt Date: 20050808
  Transmission Date: 20060218
  Serious: No
  Sender: FDA-Public Use
  Company Number: M03-341-192

PATIENT
  Age: 58 Year
  Sex: Female
  Weight: 80 kg

DRUGS (4)
  1. VELCADE [Suspect]
     Indication: MULTIPLE MYELOMA
     Dosage: 1.3 MG/M2, INTRAVENOUS
     Route: 042
     Dates: start: 20030923, end: 20031216
  2. PROCRIT [Concomitant]
  3. AREDIA [Concomitant]
  4. MS CONTIN [Concomitant]

REACTIONS (1)
  - LACRIMATION INCREASED [None]
